FAERS Safety Report 5234004-6 (Version None)
Quarter: 2007Q1

REPORT INFORMATION
  Report Type: 
  Country: None (occurrence: None)
  Receive Date: 20070206
  Receipt Date: 20070124
  Transmission Date: 20070707
  Serious: Yes (Hospitalization)
  Sender: FDA-Public Use
  Company Number: 2007-153660-NL

PATIENT
  Age: 35 Year
  Sex: Female

DRUGS (2)
  1. ETONOGESTREL [Suspect]
     Indication: CONTRACEPTION
     Dosage: DF
     Dates: start: 20061129
  2. BROMAZEPAM [Concomitant]

REACTIONS (4)
  - ABDOMINAL PAIN [None]
  - HEADACHE [None]
  - METRORRHAGIA [None]
  - URINARY TRACT INFECTION [None]
